FAERS Safety Report 17051100 (Version 1)
Quarter: 2019Q4

REPORT INFORMATION
  Report Type: Spontaneous
  Country: RU (occurrence: RU)
  Receive Date: 20191120
  Receipt Date: 20191120
  Transmission Date: 20200122
  Serious: Yes (Death, Other)
  Sender: FDA-Public Use
  Company Number: RU-SUN PHARMACEUTICAL INDUSTRIES LTD-2019R1-210312

PATIENT
  Age: 67 Year
  Sex: Female

DRUGS (3)
  1. CARBOPLATIN. [Suspect]
     Active Substance: CARBOPLATIN
     Indication: MALIGNANT MELANOMA
     Dosage: 2 CYCLES
     Route: 065
     Dates: start: 201606
  2. IMATINIB. [Suspect]
     Active Substance: IMATINIB MESYLATE
     Indication: MALIGNANT MELANOMA
     Dosage: 400 MILLIGRAM, 1DOSE/12HOUR
     Route: 065
  3. PACLITAXEL. [Suspect]
     Active Substance: PACLITAXEL
     Indication: MALIGNANT MELANOMA
     Dosage: 2 CYCLES
     Route: 065
     Dates: start: 201606

REACTIONS (4)
  - Condition aggravated [Unknown]
  - Anaemia [Unknown]
  - Periorbital oedema [Unknown]
  - Drug ineffective [Unknown]
